FAERS Safety Report 7454554-1 (Version None)
Quarter: 2011Q2

REPORT INFORMATION
  Report Type: 
  Country: None (occurrence: None)
  Receive Date: 20110503
  Receipt Date: 20110429
  Transmission Date: 20111010
  Serious: Yes (Death)
  Sender: FDA-Public Use
  Company Number: PHHY2010CA58374

PATIENT
  Sex: Female

DRUGS (1)
  1. EXJADE [Suspect]
     Indication: MYELODYSPLASTIC SYNDROME
     Dosage: 1375 MG, QD
     Route: 048
     Dates: start: 20100707

REACTIONS (3)
  - DIARRHOEA [None]
  - DEATH [None]
  - HEADACHE [None]
